FAERS Safety Report 9078699 (Version 1)
Quarter: 2013Q1

REPORT INFORMATION
  Report Type: Report from Study
  Country: US (occurrence: US)
  Receive Date: 20130130
  Receipt Date: 20130130
  Transmission Date: 20140127
  Serious: No
  Sender: FDA-Public Use
  Company Number: US-ABBOTT-12P-163-0965627-00

PATIENT
  Age: 59 Year
  Sex: Female

DRUGS (8)
  1. HUMIRA 40 MG/0.8 ML PEN [Suspect]
     Indication: RHEUMATOID ARTHRITIS
     Route: 058
     Dates: start: 20120803
  2. TRAMADOL [Concomitant]
     Indication: PAIN
  3. NAPROSYN [Concomitant]
     Indication: PAIN
  4. ETODOLAC [Concomitant]
     Indication: PAIN
     Dosage: WHEN NAPROSYN DOES NOT WORK
  5. BISOPROLOL [Concomitant]
     Indication: HYPERTENSION
  6. ALPRAZOLAM [Concomitant]
     Indication: INSOMNIA
  7. SERTRALINE [Concomitant]
     Indication: PRODUCT USED FOR UNKNOWN INDICATION
  8. VALACYCLOVIR [Concomitant]
     Indication: HERPES ZOSTER

REACTIONS (2)
  - Injection site bruising [Recovered/Resolved]
  - Injection site haemorrhage [Recovered/Resolved]
